FAERS Safety Report 5015585-4 (Version None)
Quarter: 2006Q2

REPORT INFORMATION
  Report Type: 
  Country: None (occurrence: None)
  Receive Date: 20060526
  Receipt Date: 20060510
  Transmission Date: 20061013
  Serious: Yes (Hospitalization)
  Sender: FDA-Public Use
  Company Number: 2006US000988

PATIENT
  Age: 51 Year
  Sex: Male
  Weight: 45.4 kg

DRUGS (7)
  1. AMEVIVE [Suspect]
     Indication: VITILIGO
     Dosage: 15 MG, WEEKLY
     Dates: start: 20040520, end: 20040601
  2. CODEINE (CODEINE) [Concomitant]
  3. COMBIVENT (IPRATROPIUM BROMIDE) [Concomitant]
  4. LODINE [Concomitant]
  5. PREDNISONE [Concomitant]
  6. ADVAIR DISKUS 100/50 [Concomitant]
  7. IBUPROFEN [Concomitant]

REACTIONS (14)
  - ARTHRALGIA [None]
  - ASPERGILLOMA [None]
  - CHRONIC OBSTRUCTIVE PULMONARY DISEASE [None]
  - COUGH [None]
  - DEPRESSED MOOD [None]
  - DIFFICULTY IN WALKING [None]
  - HISTOPLASMOSIS [None]
  - INFLUENZA LIKE ILLNESS [None]
  - LOSS OF CONSCIOUSNESS [None]
  - MALAISE [None]
  - MYCETOMA MYCOTIC [None]
  - PYREXIA [None]
  - RESPIRATORY FAILURE [None]
  - TREMOR [None]
